FAERS Safety Report 6869214-5 (Version None)
Quarter: 2010Q3

REPORT INFORMATION
  Report Type: 
  Country: None (occurrence: None)
  Receive Date: 20100722
  Receipt Date: 20080818
  Transmission Date: 20110219
  Serious: Yes (Hospitalization, Other)
  Sender: FDA-Public Use
  Company Number: US-PFIZER INC-2008054072

PATIENT
  Sex: Female
  Weight: 108.9 kg

DRUGS (11)
  1. CHANTIX [Suspect]
     Indication: SMOKING CESSATION THERAPY
     Dates: start: 20080620
  2. SEROQUEL [Concomitant]
  3. MIRAPEX [Concomitant]
  4. FUROSEMIDE [Concomitant]
  5. ATENOLOL [Concomitant]
  6. ZOLPIDEM [Concomitant]
  7. PROTONIX [Concomitant]
  8. SIMVASTATIN [Concomitant]
  9. AVANDAMET [Concomitant]
  10. ACETYLSALICYLIC ACID [Concomitant]
  11. NAPROSYN [Concomitant]

REACTIONS (7)
  - ARRHYTHMIA [None]
  - ASTHENIA [None]
  - DIZZINESS [None]
  - FEELING ABNORMAL [None]
  - HYPERTENSION [None]
  - NAUSEA [None]
  - PALPITATIONS [None]
